FAERS Safety Report 5493803-6 (Version None)
Quarter: 2007Q4

REPORT INFORMATION
  Report Type: 
  Country: None (occurrence: None)
  Receive Date: 20071015
  Receipt Date: 20070615
  Transmission Date: 20080405
  Serious: No
  Sender: FDA-Public Use
  Company Number: 2007SP002261

PATIENT
  Age: 57 Year
  Sex: Female
  Weight: 84.8226 kg

DRUGS (6)
  1. LUNESTA [Suspect]
     Indication: INSOMNIA
     Dosage: 3 MG; HS; ORAL; 1 MG; ORAL; 2 MG; ORAL
     Route: 048
     Dates: start: 20070601, end: 20070601
  2. LUNESTA [Suspect]
     Indication: INSOMNIA
     Dosage: 3 MG; HS; ORAL; 1 MG; ORAL; 2 MG; ORAL
     Route: 048
     Dates: start: 20070601, end: 20070613
  3. LUNESTA [Suspect]
     Indication: INSOMNIA
     Dosage: 3 MG; HS; ORAL; 1 MG; ORAL; 2 MG; ORAL
     Route: 048
     Dates: start: 20070611, end: 20070613
  4. KLONOPIN [Concomitant]
  5. SYNTHROID [Concomitant]
  6. SELEGILINE HCL [Concomitant]

REACTIONS (3)
  - DYSGEUSIA [None]
  - HANGOVER [None]
  - INSOMNIA [None]
